FAERS Safety Report 4459050-1 (Version None)
Quarter: 2004Q3

REPORT INFORMATION
  Report Type: 
  Country: None (occurrence: None)
  Receive Date: 20040927
  Receipt Date: 20040916
  Transmission Date: 20050211
  Serious: Yes (Other)
  Sender: FDA-Public Use
  Company Number: US-JNJFOC-20040505162

PATIENT
  Sex: Male
  Weight: 99.79 kg

DRUGS (31)
  1. REMICADE [Suspect]
     Route: 042
  2. REMICADE [Suspect]
     Route: 042
  3. REMICADE [Suspect]
     Route: 042
  4. REMICADE [Suspect]
     Route: 042
  5. REMICADE [Suspect]
     Route: 042
  6. REMICADE [Suspect]
     Route: 042
  7. REMICADE [Suspect]
     Route: 042
  8. REMICADE [Suspect]
     Route: 042
  9. REMICADE [Suspect]
     Route: 042
  10. REMICADE [Suspect]
     Route: 042
  11. REMICADE [Suspect]
     Dosage: FREQUENCY CHANGED ON THIS DATE
     Route: 042
  12. REMICADE [Suspect]
     Route: 042
  13. REMICADE [Suspect]
     Route: 042
  14. REMICADE [Suspect]
     Indication: RHEUMATOID ARTHRITIS
     Dosage: 1ST DOSE.
     Route: 042
  15. CELEXA [Concomitant]
  16. CENTRUM [Concomitant]
  17. CENTRUM [Concomitant]
  18. DURAGESIC [Concomitant]
  19. VERELAN [Concomitant]
  20. MOBIC [Concomitant]
  21. ACIPHEX [Concomitant]
  22. QUININE SULFATE [Concomitant]
  23. OXYCONTIN [Concomitant]
  24. BEXTRA [Concomitant]
  25. MIRALAX [Concomitant]
  26. FLEXERIL [Concomitant]
  27. METAMUCIL-2 [Concomitant]
  28. VIAGRA [Concomitant]
  29. ATARAX [Concomitant]
  30. CELECOXIB [Concomitant]
  31. CETIRIZINE HCL [Concomitant]
     Indication: PREMEDICATION

REACTIONS (13)
  - ALANINE AMINOTRANSFERASE INCREASED [None]
  - ANAPHYLACTIC REACTION [None]
  - ASPARTATE AMINOTRANSFERASE INCREASED [None]
  - CONDITION AGGRAVATED [None]
  - DIFFICULTY IN WALKING [None]
  - DISCOMFORT [None]
  - FALL [None]
  - HAEMATOCRIT DECREASED [None]
  - HAEMOGLOBIN DECREASED [None]
  - MALAISE [None]
  - PAIN IN EXTREMITY [None]
  - PRURITUS [None]
  - SPINAL FRACTURE [None]
